FAERS Safety Report 26044031 (Version 2)
Quarter: 2025Q4

REPORT INFORMATION
  Report Type: Spontaneous
  Country: EU (occurrence: EU)
  Receive Date: 20251114
  Receipt Date: 20251124
  Transmission Date: 20260118
  Serious: Yes (Other)
  Sender: TEVA
  Company Number: EU-TEVA-VS-3390874

PATIENT
  Age: 40 Year
  Sex: Female

DRUGS (2)
  1. ETOPOSIDE [Suspect]
     Active Substance: ETOPOSIDE
     Indication: Cervix carcinoma stage III
     Dosage: FOUR CYCLES
     Route: 065
     Dates: start: 2025
  2. CISPLATIN [Suspect]
     Active Substance: CISPLATIN
     Indication: Cervix carcinoma stage III
     Dosage: FOUR CYCLES
     Route: 065
     Dates: start: 2025

REACTIONS (4)
  - Neutropenia [Unknown]
  - Hypomagnesaemia [Unknown]
  - Anaemia [Unknown]
  - Toxicity to various agents [Unknown]

NARRATIVE: CASE EVENT DATE: 20250101
